FAERS Safety Report 7865771-0 (Version None)
Quarter: 2011Q4

REPORT INFORMATION
  Report Type: 
  Country: None (occurrence: None)
  Receive Date: 20111028
  Receipt Date: 20110221
  Transmission Date: 20120403
  Serious: No
  Sender: FDA-Public Use
  Company Number: US-GLAXOSMITHKLINE-A0914668A

PATIENT
  Age: 53 Year
  Sex: Female

DRUGS (9)
  1. ATROVENT [Concomitant]
  2. NEXIUM [Concomitant]
  3. COMBIVENT [Concomitant]
  4. PREDNISONE [Concomitant]
  5. SINGULAIR [Concomitant]
  6. ADVAIR DISKUS 100/50 [Suspect]
     Indication: ASTHMA
     Dosage: 1PUFF TWICE PER DAY
     Route: 055
  7. MEDROL [Concomitant]
  8. ZITHROMAX [Concomitant]
  9. NASONEX [Concomitant]

REACTIONS (6)
  - COUGH [None]
  - DYSPHONIA [None]
  - DRUG INEFFECTIVE [None]
  - DRUG PRESCRIBING ERROR [None]
  - WHEEZING [None]
  - BRONCHITIS [None]
